FAERS Safety Report 8339086-0 (Version None)
Quarter: 2012Q2

REPORT INFORMATION
  Report Type: 
  Country: None (occurrence: None)
  Receive Date: 20120502
  Receipt Date: 20120416
  Transmission Date: 20120825
  Serious: Yes (Other)
  Sender: FDA-Public Use
  Company Number: CHER20120004

PATIENT
  Sex: Male

DRUGS (1)
  1. CHERATUSSIN AC(CODEINE, GUAIFENESIN) (SOLUTION) [Suspect]
     Indication: PRODUCT USED FOR UNKNOWN INDICATION
     Dosage: 2 BOTTLES, ONCE, ORAL
     Route: 048

REACTIONS (3)
  - SCROTAL MASS [None]
  - INCORRECT DOSE ADMINISTERED [None]
  - INTENTIONAL DRUG MISUSE [None]
